FAERS Safety Report 11445722 (Version 2)
Quarter: 2015Q3

REPORT INFORMATION
  Report Type: Spontaneous
  Country: JP (occurrence: JP)
  Receive Date: 20150902
  Receipt Date: 20150922
  Transmission Date: 20151125
  Serious: Yes (Hospitalization)
  Sender: FDA-Public Use
  Company Number: JP-SA-2015SA130923

PATIENT
  Age: 83 Year
  Sex: Male
  Weight: 55 kg

DRUGS (4)
  1. APIDRA SOLOSTAR [Suspect]
     Active Substance: INSULIN GLULISINE
     Indication: TYPE 1 DIABETES MELLITUS
     Route: 065
  2. LANTUS [Suspect]
     Active Substance: INSULIN GLARGINE
     Indication: TYPE 1 DIABETES MELLITUS
     Route: 065
  3. INSULIN DEGLUDEC [Suspect]
     Active Substance: INSULIN DEGLUDEC
     Indication: TYPE 1 DIABETES MELLITUS
     Route: 065
  4. NOVORAPID [Suspect]
     Active Substance: INSULIN ASPART
     Indication: TYPE 1 DIABETES MELLITUS
     Route: 065

REACTIONS (6)
  - Glycosylated haemoglobin increased [Unknown]
  - Diabetes mellitus inadequate control [Recovered/Resolved]
  - Injection site mass [Unknown]
  - Blood glucose increased [Recovering/Resolving]
  - Blood osmolarity increased [Unknown]
  - Hyperosmolar hyperglycaemic state [Recovering/Resolving]
